FAERS Safety Report 9057001 (Version 1)
Quarter: 2013Q1

REPORT INFORMATION
  Report Type: Report from Study
  Country: US (occurrence: US)
  Receive Date: 20130131
  Receipt Date: 20130131
  Transmission Date: 20140127
  Serious: No
  Sender: FDA-Public Use
  Company Number: US-ABBOTT-12P-163-0992288-00

PATIENT
  Age: 40 Year
  Sex: Female

DRUGS (9)
  1. HUMIRA [Suspect]
     Indication: CROHN^S DISEASE
     Dates: start: 20120821
  2. TAPAZOLE [Concomitant]
     Indication: HYPERTHYROIDISM
  3. TRAMADOL HCL [Concomitant]
     Indication: PAIN
  4. PERCOCET [Concomitant]
     Indication: PAIN
     Dosage: 5/325MG
  5. TEMAZEPAM [Concomitant]
     Indication: INSOMNIA
     Dosage: HOUR OF SLEEP
  6. VITAMIN D3 WITH IRON [Concomitant]
     Indication: ANAEMIA
  7. ZINC COLONATE [Concomitant]
     Indication: ANAEMIA
  8. PARASHIELD [Concomitant]
     Indication: PRODUCT USED FOR UNKNOWN INDICATION
     Dosage: HOUR OF SLEEP
  9. PROBOULARDI [Concomitant]
     Indication: PRODUCT USED FOR UNKNOWN INDICATION
     Dosage: HOUR OF SLEEP

REACTIONS (3)
  - Diverticulitis [Not Recovered/Not Resolved]
  - Diarrhoea [Not Recovered/Not Resolved]
  - Pain [Unknown]
